FAERS Safety Report 7986304 (Version 2)
Quarter: 2014Q1

REPORT INFORMATION
  Report Type: Spontaneous
  Country: US (occurrence: US)
  Receive Date: 20110610
  Receipt Date: 20140107
  Transmission Date: 20141002
  Serious: Yes (Hospitalization, Other)
  Sender: FDA-Public Use
  Company Number: US-BAYER-2011-049544

PATIENT
  Age: 29 Year
  Sex: Female

DRUGS (23)
  1. YAZ [Suspect]
     Dosage: UNK
     Dates: start: 200903, end: 200905
  2. YASMIN [Suspect]
     Dosage: UNK
     Dates: start: 200903, end: 200905
  3. KLONOPIN [Concomitant]
     Dosage: 0.5 MG, AT BEDTIME OR AS NEEDED
     Route: 048
  4. CHLORPROMAZINE [Concomitant]
     Dosage: 50 MG, 10 DISPENSED
  5. HYDROCODONE W/APAP [Concomitant]
     Dosage: 10-325 MG TABLETS, 5-500 MG, 5-325 MG AND 7.5-500 MG TABLETS; TOTAL OF OVER 200 TABLETS DISPENSED
  6. ZOLOFT [Concomitant]
     Dosage: 50 MG, UNK
  7. ZOLOFT [Concomitant]
     Dosage: 100 MG, UNK
  8. BENADRYL [Concomitant]
     Dosage: 1 TABLET AT HS
     Route: 048
  9. BENADRYL [Concomitant]
     Route: 042
  10. VALTREX [Concomitant]
     Dosage: 500 MG, BID
     Route: 048
  11. DOXYCYCLINE HYCLATE [Concomitant]
     Dosage: 100 MG, BID
     Route: 048
  12. IBUPROFEN [Concomitant]
     Dosage: 100 MG, AS NEEDED OR THREE TIMES DAILY
     Route: 048
  13. ZOFRAN [Concomitant]
     Route: 042
  14. MORPHINE [Concomitant]
     Route: 042
  15. NEXIUM [Concomitant]
     Route: 042
  16. REGLAN [Concomitant]
     Route: 042
  17. ARAVA [Concomitant]
     Dosage: 20 MG, UNK
  18. VENTOLIN HFA [Concomitant]
     Dosage: 90 MCG PER INHALATION
  19. CYCLOBENZAPRINE [Concomitant]
     Dosage: 10 MG, UNK
  20. NORTRIPTYLINE [Concomitant]
     Dosage: 10 MG, UNK
  21. VICODIN [Concomitant]
  22. ORENCIA [Concomitant]
  23. PRILOSEC [Concomitant]

REACTIONS (7)
  - Gallbladder disorder [None]
  - Cholecystitis chronic [None]
  - Injury [None]
  - Pain [None]
  - Emotional distress [None]
  - General physical health deterioration [None]
  - Anxiety [None]
